FAERS Safety Report 25493509 (Version 1)
Quarter: 2025Q2

REPORT INFORMATION
  Report Type: Spontaneous
  Country: US (occurrence: None)
  Receive Date: 20250627
  Receipt Date: 20250627
  Transmission Date: 20250716
  Serious: No
  Sender: FDA-CTU
  Company Number: None

PATIENT
  Sex: Female

DRUGS (1)
  1. LENALIDOMIDE [Suspect]
     Active Substance: LENALIDOMIDE
     Indication: Monoclonal gammopathy
     Route: 048

REACTIONS (6)
  - Skin discolouration [None]
  - Skin exfoliation [None]
  - Palmar-plantar erythrodysaesthesia syndrome [None]
  - Heart rate decreased [None]
  - Chest pain [None]
  - Fatigue [None]
